FAERS Safety Report 7222712-7 (Version None)
Quarter: 2011Q1

REPORT INFORMATION
  Report Type: 
  Country: None (occurrence: None)
  Receive Date: 20110106
  Receipt Date: 20110106
  Transmission Date: 20110831
  Serious: No
  Sender: FDA-Public Use
  Company Number: None

PATIENT
  Age: 68 Year
  Sex: Female
  Weight: 61.6892 kg

DRUGS (1)
  1. METOPROLOL TARTRATE [Suspect]
     Indication: HYPERTENSION
     Dosage: 1 TABLET 2X A DAY MOUTH
     Route: 048
     Dates: start: 20101201, end: 20101212

REACTIONS (5)
  - EYE PRURITUS [None]
  - PRURITUS [None]
  - URTICARIA [None]
  - PERIPHERAL COLDNESS [None]
  - ERYTHEMA [None]
